FAERS Safety Report 25905728 (Version 1)
Quarter: 2025Q4

REPORT INFORMATION
  Report Type: Spontaneous
  Country: US (occurrence: US)
  Receive Date: 20251010
  Receipt Date: 20251010
  Transmission Date: 20260118
  Serious: Yes (Hospitalization, Other)
  Sender: BAYER HEALTHCARE PHARMACEUTICALS INC.
  Company Number: US-BAYER-2025A130868

PATIENT
  Age: 67 Year
  Sex: Female

DRUGS (10)
  1. ADEMPAS [Suspect]
     Active Substance: RIOCIGUAT
     Indication: Pulmonary hypertension
     Dosage: 2.5 MG
     Dates: start: 20181128
  2. ROSUVASTATIN [Concomitant]
     Active Substance: ROSUVASTATIN
  3. DABIGATRAN [Concomitant]
     Active Substance: DABIGATRAN
  4. OXYCODONE [Concomitant]
     Active Substance: OXYCODONE
  5. SENNA [Concomitant]
     Active Substance: SENNOSIDES
  6. COLACE [Concomitant]
     Active Substance: DOCUSATE SODIUM
  7. FERROUS SULFATE [Concomitant]
     Active Substance: FERROUS SULFATE
  8. ASCORBIC ACID [Concomitant]
     Active Substance: ASCORBIC ACID
  9. TYLENOL [Concomitant]
     Active Substance: ACETAMINOPHEN
  10. VITAMINS [Concomitant]
     Active Substance: VITAMINS

REACTIONS (2)
  - Ileostomy closure [None]
  - Rectal cancer [None]

NARRATIVE: CASE EVENT DATE: 20241101
